FAERS Safety Report 23349070 (Version 2)
Quarter: 2024Q1

REPORT INFORMATION
  Report Type: Report from Study
  Country: US (occurrence: US)
  Receive Date: 20231229
  Receipt Date: 20240103
  Transmission Date: 20240410
  Serious: Yes (Other)
  Sender: FDA-Public Use
  Company Number: US-UCBSA-2023060725

PATIENT
  Age: 13 Year
  Sex: Male
  Weight: 44 kg

DRUGS (5)
  1. FINTEPLA [Suspect]
     Active Substance: FENFLURAMINE
     Indication: Lennox-Gastaut syndrome
     Dosage: TITRATE TO 4 MILLILITER, 2X/DAY (BID)
     Dates: start: 2022
  2. FINTEPLA [Suspect]
     Active Substance: FENFLURAMINE
     Dosage: 5.9 MILLILITER, 2X/DAY (BID)
  3. FINTEPLA [Suspect]
     Active Substance: FENFLURAMINE
     Dosage: 11 MILLIGRAM, 2X/DAY (BID)
     Dates: start: 202206
  4. FINTEPLA [Suspect]
     Active Substance: FENFLURAMINE
     Dosage: 12.98 MILLIGRAM, 2X/DAY (BID)
     Dates: start: 202206
  5. FINTEPLA [Suspect]
     Active Substance: FENFLURAMINE
     Dosage: 26 MILLIGRAM, 2X/DAY (BID)
     Dates: start: 20220413

REACTIONS (2)
  - Aortic valve disease [Not Recovered/Not Resolved]
  - Echocardiogram abnormal [Not Recovered/Not Resolved]

NARRATIVE: CASE EVENT DATE: 20231204
